FAERS Safety Report 20509962 (Version 1)
Quarter: 2022Q1

REPORT INFORMATION
  Report Type: Spontaneous
  Country: FR (occurrence: FR)
  Receive Date: 20220224
  Receipt Date: 20220224
  Transmission Date: 20220424
  Serious: Yes (Other)
  Sender: FDA-Public Use
  Company Number: FR-SUN PHARMACEUTICAL INDUSTRIES LTD-2022RR-327979

PATIENT
  Age: 45 Year
  Sex: Male

DRUGS (7)
  1. VENLAFAXINE [Suspect]
     Active Substance: VENLAFAXINE HYDROCHLORIDE
     Indication: Product used for unknown indication
     Dosage: 75MG/DAY IN COMBINATION WITH ALCOHOL
     Route: 048
  2. OXAZEPAM [Suspect]
     Active Substance: OXAZEPAM
     Indication: Product used for unknown indication
     Dosage: 2 TABLETS OF 50 MG PER DAY
     Route: 048
  3. IMOVANE [Suspect]
     Active Substance: ZOPICLONE
     Indication: Product used for unknown indication
     Dosage: 1 TAB/D AT BEDTIME
     Route: 048
  4. MIANSERIN HYDROCHLORIDE [Suspect]
     Active Substance: MIANSERIN HYDROCHLORIDE
     Indication: Product used for unknown indication
     Dosage: 10 MG DAILY IN COMBINATION WITH ALCOHOL
     Route: 048
  5. SUBUTEX [Suspect]
     Active Substance: BUPRENORPHINE HYDROCHLORIDE
     Indication: Product used for unknown indication
     Dosage: UNSPECIFIED
     Route: 055
  6. SUBUTEX [Suspect]
     Active Substance: BUPRENORPHINE HYDROCHLORIDE
     Dosage: UNSPECIFIED
     Route: 045
  7. SUBUTEX [Suspect]
     Active Substance: BUPRENORPHINE HYDROCHLORIDE
     Dosage: UNSPECIFIED
     Route: 048

REACTIONS (2)
  - Drug dependence [Not Recovered/Not Resolved]
  - Intentional product misuse [Not Recovered/Not Resolved]
